FAERS Safety Report 21719502 (Version 1)
Quarter: 2022Q4

REPORT INFORMATION
  Report Type: Spontaneous
  Country: US (occurrence: US)
  Receive Date: 20221213
  Receipt Date: 20221213
  Transmission Date: 20230113
  Serious: No
  Sender: FDA-Public Use
  Company Number: MIQ-10272021-2472

PATIENT
  Sex: Male

DRUGS (1)
  1. IVERMECTIN [Suspect]
     Active Substance: IVERMECTIN
     Indication: Product used for unknown indication
     Dosage: UNK
     Route: 048

REACTIONS (4)
  - Pain of skin [Unknown]
  - Muscle tightness [Unknown]
  - Sleep disorder [Unknown]
  - Pruritus [Unknown]

NARRATIVE: CASE EVENT DATE: 20210101
